FAERS Safety Report 19080252 (Version 2)
Quarter: 2021Q2

REPORT INFORMATION
  Report Type: Report from Study
  Country: FR (occurrence: FR)
  Receive Date: 20210331
  Receipt Date: 20210510
  Transmission Date: 20210717
  Serious: Yes (Hospitalization)
  Sender: FDA-Public Use
  Company Number: FR-ELI_LILLY_AND_COMPANY-FR202103012500

PATIENT
  Age: 71 Year
  Sex: Male
  Weight: 84 kg

DRUGS (1)
  1. BAMLANIVIMAB. [Suspect]
     Active Substance: BAMLANIVIMAB
     Indication: COVID-19
     Dosage: UNK UNK, SINGLE
     Route: 065
     Dates: start: 20210226, end: 20210226

REACTIONS (2)
  - COVID-19 [Recovering/Resolving]
  - Superinfection [Recovering/Resolving]

NARRATIVE: CASE EVENT DATE: 20210301
